FAERS Safety Report 10239270 (Version 4)
Quarter: 2015Q1

REPORT INFORMATION
  Report Type: Spontaneous
  Country: US (occurrence: US)
  Receive Date: 20140616
  Receipt Date: 20150220
  Transmission Date: 20150720
  Serious: Yes (Other)
  Sender: FDA-Public Use
  Company Number: US-BAYER-2014-085510

PATIENT
  Age: 35 Year
  Sex: Female
  Weight: 68.03 kg

DRUGS (1)
  1. MIRENA [Suspect]
     Active Substance: LEVONORGESTREL
     Dosage: 20 MCG/24HR, CONT
     Route: 015

REACTIONS (11)
  - Pregnancy with contraceptive device [None]
  - Treatment noncompliance [Unknown]
  - Device dislocation [Recovered/Resolved]
  - Drug ineffective [None]
  - Arthralgia [Recovered/Resolved]
  - Procedural pain [Not Recovered/Not Resolved]
  - Fatigue [Recovered/Resolved]
  - Back pain [Recovered/Resolved]
  - Fallopian tube enlargement [Recovered/Resolved]
  - Abortion spontaneous [None]
  - Nausea [Recovered/Resolved]

NARRATIVE: CASE EVENT DATE: 2010
